FAERS Safety Report 8788265 (Version 2)
Quarter: 2015Q3

REPORT INFORMATION
  Report Type: Report from Study
  Country: US (occurrence: US)
  Receive Date: 20120915
  Receipt Date: 20150714
  Transmission Date: 20151125
  Serious: Yes (Death, Other)
  Sender: FDA-Public Use
  Company Number: US-ROCHE-1128009

PATIENT
  Age: 50 Year
  Sex: Female

DRUGS (20)
  1. LEXAPRO [Concomitant]
     Active Substance: ESCITALOPRAM OXALATE
     Route: 065
  2. LEVOTHYROXINE. [Concomitant]
     Active Substance: LEVOTHYROXINE
  3. VICODIN [Concomitant]
     Active Substance: ACETAMINOPHEN\HYDROCODONE BITARTRATE
     Indication: PAIN
     Dosage: AS REQUIRED
     Route: 065
  4. AVASTIN [Suspect]
     Active Substance: BEVACIZUMAB
     Indication: BREAST CANCER FEMALE
     Route: 042
     Dates: start: 20070105
  5. XELODA [Suspect]
     Active Substance: CAPECITABINE
     Indication: PRODUCT USED FOR UNKNOWN INDICATION
     Route: 065
  6. DEXAMETHASONE SODIUM PHOSPHATE. [Concomitant]
     Active Substance: DEXAMETHASONE SODIUM PHOSPHATE
     Route: 042
  7. OXYCODONE [Concomitant]
     Active Substance: OXYCODONE
  8. PROVIGIL [Concomitant]
     Active Substance: MODAFINIL
  9. ABRAXANE [Concomitant]
     Active Substance: PACLITAXEL
     Route: 065
  10. GEMCITABINE [Concomitant]
     Active Substance: GEMCITABINE\GEMCITABINE HYDROCHLORIDE
     Route: 042
  11. TAXOTERE [Concomitant]
     Active Substance: DOCETAXEL
  12. AVASTIN [Suspect]
     Active Substance: BEVACIZUMAB
     Route: 042
  13. PALONOSETRON HYDROCHLORIDE [Concomitant]
     Active Substance: PALONOSETRON HYDROCHLORIDE
     Route: 042
  14. GEMCITABINE [Concomitant]
     Active Substance: GEMCITABINE\GEMCITABINE HYDROCHLORIDE
     Route: 042
  15. ZOMETA [Concomitant]
     Active Substance: ZOLEDRONIC ACID
  16. AVASTIN [Suspect]
     Active Substance: BEVACIZUMAB
     Route: 042
     Dates: start: 20080922
  17. ZOLADEX [Concomitant]
     Active Substance: GOSERELIN ACETATE
  18. MOBIC [Concomitant]
     Active Substance: MELOXICAM
  19. LORAZEPAM. [Concomitant]
     Active Substance: LORAZEPAM
  20. TYLENOL [Concomitant]
     Active Substance: ACETAMINOPHEN
     Dosage: AS REQUIRED
     Route: 065

REACTIONS (38)
  - Compression fracture [Unknown]
  - Metastases to bone [Unknown]
  - Feeling guilty [Unknown]
  - Scoliosis [Unknown]
  - Skin fissures [Unknown]
  - Skin exfoliation [Unknown]
  - Blindness [Unknown]
  - Disturbance in attention [Unknown]
  - Psychomotor hyperactivity [Unknown]
  - Arthralgia [Unknown]
  - Erythema [Unknown]
  - Nausea [Unknown]
  - Dysgeusia [Unknown]
  - Anhedonia [Unknown]
  - Depression [Unknown]
  - Pain in extremity [Unknown]
  - Anxiety [Unknown]
  - Memory impairment [Unknown]
  - Fatigue [Unknown]
  - Influenza like illness [Unknown]
  - Chest pain [Recovered/Resolved]
  - Pollakiuria [Unknown]
  - Insomnia [Unknown]
  - Cough [Unknown]
  - Suicidal ideation [Unknown]
  - Weight fluctuation [Unknown]
  - Hypothyroidism [Unknown]
  - Paranasal sinus hypersecretion [Unknown]
  - Haemorrhoids [Unknown]
  - Musculoskeletal pain [Unknown]
  - Dry eye [Unknown]
  - Hypoaesthesia [Unknown]
  - Proctalgia [Unknown]
  - Muscular weakness [Unknown]
  - Swelling [Unknown]
  - Death [Fatal]
  - Depressed mood [Unknown]
  - Asthenia [Unknown]

NARRATIVE: CASE EVENT DATE: 20100601
